FAERS Safety Report 7443437-9 (Version None)
Quarter: 2011Q2

REPORT INFORMATION
  Report Type: 
  Country: None (occurrence: None)
  Receive Date: 20110428
  Receipt Date: 20110415
  Transmission Date: 20111010
  Serious: Yes (Hospitalization, Disabling, Other)
  Sender: FDA-Public Use
  Company Number: US-CELGENEUS-163-21880-10091072

PATIENT
  Sex: Male

DRUGS (14)
  1. METHADONE [Concomitant]
     Route: 065
  2. METFORMIN [Concomitant]
     Route: 065
  3. CYCLOBENZAPRINE [Concomitant]
     Route: 065
  4. OXYCODONE HCL [Concomitant]
     Route: 065
  5. SIMVASTATIN [Concomitant]
     Route: 065
  6. FAMOTIDINE [Concomitant]
     Route: 065
  7. LISINOPRIL [Concomitant]
     Route: 065
  8. GABAPENTIN [Concomitant]
     Route: 065
  9. REVLIMID [Suspect]
     Dosage: 15 MILLIGRAM
     Route: 048
     Dates: start: 20100804, end: 20100815
  10. DECADRON [Concomitant]
     Route: 065
     Dates: start: 20090601
  11. TAMSULOSIN [Concomitant]
     Route: 065
  12. ACYCLOVIR [Concomitant]
     Route: 065
  13. REVLIMID [Suspect]
     Indication: MULTIPLE MYELOMA
     Dosage: 15 MILLIGRAM
     Route: 048
     Dates: start: 20090601, end: 20100701
  14. TRAZODONE [Concomitant]
     Route: 065

REACTIONS (2)
  - DELIRIUM [None]
  - PYREXIA [None]
